FAERS Safety Report 5537426-9 (Version None)
Quarter: 2007Q4

REPORT INFORMATION
  Report Type: 
  Country: None (occurrence: None)
  Receive Date: 20071207
  Receipt Date: 20071108
  Transmission Date: 20080405
  Serious: Yes (Other)
  Sender: FDA-Public Use
  Company Number: ZA-ROCHE-530700

PATIENT
  Sex: Female

DRUGS (2)
  1. ROACCUTANE [Suspect]
     Indication: ACNE
     Route: 048
     Dates: end: 20070915
  2. ROACCUTANE [Suspect]
     Route: 048
     Dates: start: 20070815

REACTIONS (2)
  - NO ADVERSE EVENT [None]
  - PREGNANCY [None]
